FAERS Safety Report 6016433-6 (Version None)
Quarter: 2008Q4

REPORT INFORMATION
  Report Type: 
  Country: None (occurrence: None)
  Receive Date: 20081222
  Receipt Date: 20081216
  Transmission Date: 20090506
  Serious: Yes (Death, Hospitalization)
  Sender: FDA-Public Use
  Company Number: IT-AMGEN-UK252814

PATIENT
  Sex: Male

DRUGS (17)
  1. PANITUMUMAB [Suspect]
     Indication: COLORECTAL CANCER
     Route: 042
     Dates: start: 20071011, end: 20071011
  2. IRINOTECAN HYDROCHLORIDE [Concomitant]
     Indication: COLORECTAL CANCER
     Dates: start: 20071011, end: 20071011
  3. FOLINIC ACID [Concomitant]
     Dates: start: 20071011, end: 20071011
  4. FLUOROURACIL [Concomitant]
     Dates: start: 20071011, end: 20071011
  5. METOCLOPROMIDE [Concomitant]
     Route: 048
     Dates: start: 20071025, end: 20071107
  6. DELTACORTENE [Concomitant]
     Route: 048
     Dates: start: 20071025, end: 20071107
  7. DIAMICRON [Concomitant]
     Route: 048
     Dates: start: 20071011, end: 20071107
  8. FUROSEMIDE [Concomitant]
     Route: 048
  9. CALCIUM-SANDOZ [Concomitant]
     Route: 048
     Dates: start: 20071102, end: 20071107
  10. TRIAZOLAM [Concomitant]
     Route: 048
  11. GLUCOPHAGE [Concomitant]
     Route: 048
     Dates: start: 20071011, end: 20071117
  12. SPIRONOLACTONE [Concomitant]
     Route: 048
  13. MAGNESIUM SULFATE [Concomitant]
     Route: 048
     Dates: start: 20071025, end: 20071107
  14. VASELINE [Concomitant]
     Route: 048
     Dates: start: 20071025, end: 20071107
  15. ATROPINE [Concomitant]
  16. MORPHINE [Concomitant]
     Route: 042
     Dates: start: 20071116
  17. POLYGELINE [Concomitant]

REACTIONS (4)
  - ASTHENIA [None]
  - BACK PAIN [None]
  - GENERALISED OEDEMA [None]
  - MALIGNANT NEOPLASM PROGRESSION [None]
